FAERS Safety Report 4306714-6 (Version None)
Quarter: 2004Q1

REPORT INFORMATION
  Report Type: 
  Country: None (occurrence: None)
  Receive Date: 20040225
  Receipt Date: 20031215
  Transmission Date: 20041129
  Serious: No
  Sender: FDA-Public Use
  Company Number: US-BRISTOL-MYERS SQUIBB COMPANY-12458295

PATIENT
  Age: 23 Year
  Sex: Male
  Weight: 66 kg

DRUGS (2)
  1. EXCEDRIN ES TABS [Suspect]
     Indication: PAIN
     Dosage: DOSAGE: 2 TABLETS ^AT LEAST^ EVERY 2-3 HOURS
     Route: 048
     Dates: start: 20031215, end: 20031215
  2. EXCEDRIN ES TABS [Suspect]
     Indication: INFLUENZA
     Dosage: DOSAGE: 2 TABLETS ^AT LEAST^ EVERY 2-3 HOURS
     Route: 048
     Dates: start: 20031215, end: 20031215

REACTIONS (5)
  - CHEST PAIN [None]
  - DIZZINESS [None]
  - FEELING JITTERY [None]
  - NERVOUSNESS [None]
  - SYNCOPE [None]
